FAERS Safety Report 9409236 (Version 2)
Quarter: 2013Q3

REPORT INFORMATION
  Report Type: Spontaneous
  Country: US (occurrence: US)
  Receive Date: 20130719
  Receipt Date: 20130919
  Transmission Date: 20140515
  Serious: No
  Sender: FDA-Public Use
  Company Number: US-PFIZER INC-2013211662

PATIENT
  Age: 52 Year
  Sex: Female
  Weight: 64.85 kg

DRUGS (3)
  1. PRISTIQ [Suspect]
     Indication: HALLUCINATION
     Dosage: 100 MG, DAILY
     Route: 048
     Dates: start: 201306, end: 2013
  2. PRISTIQ [Suspect]
     Indication: DEPRESSION
  3. CLONIDINE [Concomitant]
     Indication: HYPERTENSION
     Dosage: 2 MG, DAILY
     Route: 048

REACTIONS (4)
  - Panic attack [Recovered/Resolved]
  - Nausea [Recovered/Resolved]
  - Dizziness [Recovered/Resolved]
  - Cold sweat [Recovered/Resolved]
